FAERS Safety Report 6970901-9 (Version None)
Quarter: 2010Q3

REPORT INFORMATION
  Report Type: 
  Country: None (occurrence: None)
  Receive Date: 20100908
  Receipt Date: 20100831
  Transmission Date: 20110219
  Serious: Yes (Other)
  Sender: FDA-Public Use
  Company Number: DE-ROCHE-725070

PATIENT

DRUGS (1)
  1. METHOXY POLYETHYLENE GLYCOL-EPOETIN BETA [Suspect]
     Route: 065

REACTIONS (3)
  - HAEMOGLOBIN DECREASED [None]
  - HAEMORRHAGIC ANAEMIA [None]
  - ILEUS [None]
